FAERS Safety Report 11194927 (Version 1)
Quarter: 2015Q2

REPORT INFORMATION
  Report Type: Spontaneous
  Country: US (occurrence: None)
  Receive Date: 20150615
  Receipt Date: 20150615
  Transmission Date: 20150821
  Serious: Yes (Death, Hospitalization)
  Sender: FDA-Public Use
  Company Number: FK201502688

PATIENT
  Age: 79 Year
  Sex: Female

DRUGS (4)
  1. VANCOMYCIN [Concomitant]
     Active Substance: VANCOMYCIN
  2. IMMUNOGLOBULIN (IMMUNOGLOBULIN HUMAN NORMAL) [Concomitant]
  3. METHYLPREDNISOLONE (MANUFACTURER UNKNOWN)  (METHYLPREDNISOLONE SODIUM SUCCINATE) (METHYLPREDNISOLONE SODIUM SUCCINATE) [Suspect]
     Active Substance: METHYLPREDNISOLONE
     Indication: STEVENS-JOHNSON SYNDROME
     Dosage: 80 MG, 1 IN 12 HR, INTRAVENOUS (NOT OTHERWISE SPECIFIED)
     Route: 042
  4. AZTREONAM. [Concomitant]
     Active Substance: AZTREONAM

REACTIONS (6)
  - Multi-organ failure [None]
  - Disseminated intravascular coagulation [None]
  - Bronchopulmonary aspergillosis [None]
  - Encephalopathy [None]
  - Zygomycosis [None]
  - Acute kidney injury [None]
